FAERS Safety Report 18249101 (Version 2)
Quarter: 2020Q4

REPORT INFORMATION
  Report Type: Report from Study
  Country: None (occurrence: US)
  Receive Date: 20200909
  Receipt Date: 20201027
  Transmission Date: 20210113
  Serious: No
  Sender: FDA-Public Use
  Company Number: US-ABBVIE-20K-163-3523159-00

PATIENT
  Sex: Female

DRUGS (2)
  1. HUMIRA [Suspect]
     Active Substance: ADALIMUMAB
     Indication: PSORIATIC ARTHROPATHY
  2. HUMIRA [Suspect]
     Active Substance: ADALIMUMAB
     Indication: PSORIASIS
     Route: 058
     Dates: start: 20200714

REACTIONS (13)
  - Skin irritation [Recovering/Resolving]
  - Pruritus [Recovering/Resolving]
  - Anger [Recovered/Resolved]
  - Quality of life decreased [Recovered/Resolved]
  - Psoriasis [Recovering/Resolving]
  - Frustration tolerance decreased [Recovered/Resolved]
  - Peripheral swelling [Recovering/Resolving]
  - Emotional distress [Recovered/Resolved]
  - Rash erythematous [Recovering/Resolving]
  - Pain in extremity [Recovering/Resolving]
  - Self-consciousness [Recovered/Resolved]
  - Onychalgia [Unknown]
  - Therapeutic product effect incomplete [Unknown]

NARRATIVE: CASE EVENT DATE: 2020
